FAERS Safety Report 4506370-8 (Version None)
Quarter: 2004Q4

REPORT INFORMATION
  Report Type: 
  Country: None (occurrence: None)
  Receive Date: 20041025
  Receipt Date: 20030909
  Transmission Date: 20050328
  Serious: Yes (Hospitalization)
  Sender: FDA-Public Use
  Company Number: US-JNJFOC-20030603917

PATIENT
  Age: 46 Year
  Sex: Female

DRUGS (8)
  1. REMICADE [Suspect]
     Indication: CROHN'S DISEASE
     Dosage: 300 MG, 1 IN 1 DAY, INTRAVENOUS; 300 MG, INTRAVENOUS
     Route: 042
     Dates: start: 20030512, end: 20030512
  2. REMICADE [Suspect]
     Indication: CROHN'S DISEASE
     Dosage: 300 MG, 1 IN 1 DAY, INTRAVENOUS; 300 MG, INTRAVENOUS
     Route: 042
     Dates: start: 20000501
  3. REMICADE [Suspect]
     Indication: CROHN'S DISEASE
     Dosage: 300 MG, 1 IN 1 DAY, INTRAVENOUS; 300 MG, INTRAVENOUS
     Route: 042
     Dates: start: 20010401
  4. MERCAPTOPURINE [Concomitant]
  5. ASACOL [Concomitant]
  6. AMITRIPTYLINE HCL [Concomitant]
  7. PREDNISONE [Concomitant]
  8. PREMARIN [Concomitant]

REACTIONS (1)
  - ARTHRALGIA [None]
